FAERS Safety Report 4828233-0 (Version None)
Quarter: 2005Q4

REPORT INFORMATION
  Report Type: 
  Country: None (occurrence: None)
  Receive Date: 20051115
  Receipt Date: 20050421
  Transmission Date: 20060501
  Serious: No
  Sender: FDA-Public Use
  Company Number: US-BRISTOL-MYERS SQUIBB COMPANY-12941985

PATIENT
  Age: 43 Year
  Sex: Male
  Weight: 69 kg

DRUGS (4)
  1. SUSTIVA [Suspect]
     Indication: HIV INFECTION
     Route: 048
     Dates: start: 20050309, end: 20050401
  2. BACTRIM [Concomitant]
  3. PROLIXIN [Concomitant]
  4. LITHIUM [Concomitant]

REACTIONS (1)
  - NEUTROPENIA [None]
